FAERS Safety Report 8934459 (Version 1)
Quarter: 2012Q4

REPORT INFORMATION
  Report Type: 
  Country: US (occurrence: US)
  Receive Date: 20121128
  Receipt Date: 20121128
  Transmission Date: 20130627
  Serious: No
  Sender: FDA-Public Use
  Company Number: US-TEVA-372096USA

PATIENT
  Sex: Female

DRUGS (1)
  1. COPAXONE [Suspect]
     Indication: MULTIPLE SCLEROSIS
     Dates: start: 20120826

REACTIONS (5)
  - Pregnancy [Unknown]
  - Dysuria [Unknown]
  - Vaginal discharge [Unknown]
  - Burning sensation [Unknown]
  - Urine odour abnormal [Unknown]
